FAERS Safety Report 4424503-9 (Version None)
Quarter: 2004Q3

REPORT INFORMATION
  Report Type: 
  Country: None (occurrence: None)
  Receive Date: 20040812
  Receipt Date: 20040314
  Transmission Date: 20050211
  Serious: Yes (Other)
  Sender: FDA-Public Use
  Company Number: US-ROCHE-361782

PATIENT
  Age: 46 Year
  Sex: Male
  Weight: 142.9 kg

DRUGS (5)
  1. PEGASYS [Suspect]
     Indication: HEPATITIS C
     Dosage: TAKEN WEEKLY
     Route: 058
     Dates: start: 20040314, end: 20040314
  2. COPEGUS [Suspect]
     Indication: HEPATITIS C
     Dosage: REGIMEN REPORTED AS 3 AM, 3 PM.
     Route: 048
     Dates: start: 20040314, end: 20040314
  3. CORGARD [Concomitant]
     Route: 048
     Dates: start: 19990615
  4. PROZAC [Concomitant]
     Route: 048
     Dates: start: 19940615
  5. METHADONE HCL [Concomitant]
     Dates: start: 19910615

REACTIONS (4)
  - DYSPNOEA [None]
  - EXTRAPYRAMIDAL DISORDER [None]
  - LUNG DISORDER [None]
  - VOMITING [None]
